FAERS Safety Report 10289476 (Version 1)
Quarter: 2014Q3

REPORT INFORMATION
  Report Type: Spontaneous
  Country: SE (occurrence: SE)
  Receive Date: 20140710
  Receipt Date: 20140710
  Transmission Date: 20150326
  Serious: Yes (Hospitalization)
  Sender: FDA-Public Use
  Company Number: SE-BRISTOL-MYERS SQUIBB COMPANY-21151436

PATIENT
  Age: 77 Year
  Sex: Male

DRUGS (10)
  1. ATORVASTATIN [Concomitant]
     Active Substance: ATORVASTATIN
  2. HUMALOG [Concomitant]
     Active Substance: INSULIN LISPRO
  3. HYDREA [Suspect]
     Active Substance: HYDROXYUREA
     Indication: POLYCYTHAEMIA VERA
     Dates: start: 20140410
  4. AMLODIPINE [Concomitant]
     Active Substance: AMLODIPINE BESYLATE
  5. EUMOVATE [Concomitant]
     Active Substance: CLOBETASONE BUTYRATE
  6. TROMBYL [Concomitant]
     Active Substance: ASPIRIN
  7. HUMULIN NOS [Concomitant]
     Active Substance: INSULIN HUMAN
  8. DOXAZOSIN [Concomitant]
     Active Substance: DOXAZOSIN\DOXAZOSIN MESYLATE
  9. HYDREA [Suspect]
     Active Substance: HYDROXYUREA
     Indication: POLYCYTHAEMIA VERA
     Dosage: INCREASED TO 1 CAPSULE DAILY ON 09-MAY-2014.
     Dates: start: 20140410, end: 20140522
  10. TROMBYL [Concomitant]
     Active Substance: ASPIRIN
     Dosage: 75 MG TABLET

REACTIONS (8)
  - Sepsis [Unknown]
  - Purpura [Not Recovered/Not Resolved]
  - Pyrexia [Unknown]
  - Fungal skin infection [Unknown]
  - Rash [Recovered/Resolved]
  - Off label use [Unknown]
  - Vomiting [Unknown]
  - Petechiae [Unknown]

NARRATIVE: CASE EVENT DATE: 201405
